FAERS Safety Report 23895447 (Version 3)
Quarter: 2024Q4

REPORT INFORMATION
  Report Type: Report from Study
  Country: US (occurrence: US)
  Receive Date: 20240524
  Receipt Date: 20241018
  Transmission Date: 20250114
  Serious: No
  Sender: ROCHE
  Company Number: US-ROCHE-3089997

PATIENT
  Age: 64 Year
  Sex: Male

DRUGS (3)
  1. XOLAIR [Suspect]
     Active Substance: OMALIZUMAB
     Indication: Asthma
     Dosage: INJECT 2ML 300 MG UNDER SKIN EVERY 30 DAYS
     Route: 058
     Dates: start: 20220429
  2. XOLAIR [Suspect]
     Active Substance: OMALIZUMAB
     Indication: Asthma
     Dosage: INJECT 2.5ML (375MG) SUBCUTANEOUSLY EVERY 21 DAY(S)
     Route: 058
  3. XOLAIR [Suspect]
     Active Substance: OMALIZUMAB
     Dosage: INJECT 2.5ML (375MG) SUBCUTANEOUSLY EVERY 21 DAY(S)
     Route: 058

REACTIONS (2)
  - Off label use [Unknown]
  - Eye operation [Unknown]
